FAERS Safety Report 18626977 (Version 1)
Quarter: 2020Q4

REPORT INFORMATION
  Report Type: Spontaneous
  Country: US (occurrence: US)
  Receive Date: 20201216
  Receipt Date: 20201216
  Transmission Date: 20210114
  Serious: Yes (Hospitalization)
  Sender: FDA-Public Use
  Company Number: None

PATIENT
  Age: 56 Year
  Sex: Male
  Weight: 122 kg

DRUGS (1)
  1. DAPTOMYCIN (DAPTOMYCIN 500MG/VIL INJ) [Suspect]
     Active Substance: DAPTOMYCIN
     Indication: DIABETIC FOOT INFECTION
     Route: 048
     Dates: start: 20201113, end: 20201204

REACTIONS (3)
  - Therapy change [None]
  - Eosinophilic pneumonia [None]
  - Blood creatine phosphokinase decreased [None]

NARRATIVE: CASE EVENT DATE: 20201204
